FAERS Safety Report 4345591-4 (Version None)
Quarter: 2004Q2

REPORT INFORMATION
  Report Type: 
  Country: None (occurrence: None)
  Receive Date: 20040421
  Receipt Date: 20040412
  Transmission Date: 20050107
  Serious: Yes (Other)
  Sender: FDA-Public Use
  Company Number: 2004024571

PATIENT
  Age: 66 Year
  Sex: Female
  Weight: 40.8237 kg

DRUGS (1)
  1. BENADRYL [Suspect]
     Indication: COUGH
     Dosage: QD, ORAL
     Route: 048

REACTIONS (3)
  - DRUG DEPENDENCE [None]
  - FATIGUE [None]
  - WEIGHT DECREASED [None]
